FAERS Safety Report 6502775-4 (Version None)
Quarter: 2009Q4

REPORT INFORMATION
  Report Type: 
  Country: None (occurrence: None)
  Receive Date: 20091217
  Receipt Date: 20091210
  Transmission Date: 20100525
  Serious: No
  Sender: FDA-Public Use
  Company Number: US-JNJFOC-20091201119

PATIENT
  Sex: Male
  Weight: 124.1 kg

DRUGS (10)
  1. INFLIXIMAB [Suspect]
     Route: 042
     Dates: start: 20090501, end: 20091005
  2. INFLIXIMAB [Suspect]
     Indication: RHEUMATOID ARTHRITIS
     Route: 042
     Dates: start: 20090501, end: 20091005
  3. METHOTREXATE [Concomitant]
     Indication: RHEUMATOID ARTHRITIS
     Route: 048
  4. FOLIC ACID [Concomitant]
     Indication: RHEUMATOID ARTHRITIS
     Route: 048
  5. NAPROXEN [Concomitant]
     Indication: RHEUMATOID ARTHRITIS
     Route: 048
  6. HUMIRA [Concomitant]
     Indication: RHEUMATOID ARTHRITIS
     Route: 058
  7. METFORMIN HCL [Concomitant]
     Indication: TYPE 2 DIABETES MELLITUS
     Route: 048
  8. ADVAIR DISKUS 100/50 [Concomitant]
     Indication: DYSPNOEA
  9. ALBUTEROL [Concomitant]
     Indication: DYSPNOEA
     Dosage: DOSE: 90 MCG
  10. PRISTIQ [Concomitant]
     Indication: DEPRESSION
     Route: 048

REACTIONS (1)
  - BASAL CELL CARCINOMA [None]
